FAERS Safety Report 6616211-0 (Version None)
Quarter: 2010Q1

REPORT INFORMATION
  Report Type: 
  Country: None (occurrence: None)
  Receive Date: 20100305
  Receipt Date: 20100301
  Transmission Date: 20100710
  Serious: Yes (Death, Hospitalization, Other)
  Sender: FDA-Public Use
  Company Number: PHEH2008US02535

PATIENT
  Sex: Female

DRUGS (1)
  1. AREDIA [Suspect]

REACTIONS (19)
  - ANXIETY [None]
  - BONE LESION [None]
  - DEATH [None]
  - DEFORMITY [None]
  - HYPOAESTHESIA [None]
  - INFECTION [None]
  - INJURY [None]
  - INTERVERTEBRAL DISC PROTRUSION [None]
  - MASTOIDITIS [None]
  - METASTATIC NEOPLASM [None]
  - NAUSEA [None]
  - OSTEOMYELITIS [None]
  - OSTEONECROSIS [None]
  - PAIN [None]
  - PAIN IN JAW [None]
  - PARAESTHESIA [None]
  - PHYSICAL DISABILITY [None]
  - TOOTH EXTRACTION [None]
  - VOMITING [None]
